FAERS Safety Report 6429260-2 (Version None)
Quarter: 2009Q4

REPORT INFORMATION
  Report Type: 
  Country: None (occurrence: None)
  Receive Date: 20091105
  Receipt Date: 20091027
  Transmission Date: 20100525
  Serious: Yes (Hospitalization)
  Sender: FDA-Public Use
  Company Number: PHHO2009US09269

PATIENT

DRUGS (2)
  1. ICL670A ICL+DISTAB [Suspect]
     Indication: IRON OVERLOAD
  2. DESFERAL T21423+PWD [Suspect]
     Indication: IRON OVERLOAD

REACTIONS (1)
  - ABDOMINAL PAIN [None]
